FAERS Safety Report 6237918-3 (Version None)
Quarter: 2009Q2

REPORT INFORMATION
  Report Type: 
  Country: None (occurrence: None)
  Receive Date: 20090621
  Receipt Date: 20090609
  Transmission Date: 20091009
  Serious: Yes (Other)
  Sender: FDA-Public Use
  Company Number: PHHY2008NL30479

PATIENT
  Sex: Female
  Weight: 63 kg

DRUGS (1)
  1. MYFORTIC [Suspect]
     Indication: ECZEMA
     Dosage: 700 MG, BID
     Route: 048
     Dates: start: 20060101, end: 20090121

REACTIONS (7)
  - ACUTE POLYNEUROPATHY [None]
  - AREFLEXIA [None]
  - DYSAESTHESIA [None]
  - GUILLAIN-BARRE SYNDROME [None]
  - INFLUENZA LIKE ILLNESS [None]
  - PAIN [None]
  - PARAESTHESIA [None]
